FAERS Safety Report 9838403 (Version 2)
Quarter: 2014Q1

REPORT INFORMATION
  Report Type: Spontaneous
  Country: US (occurrence: US)
  Receive Date: 20140123
  Receipt Date: 20140123
  Transmission Date: 20141002
  Serious: No
  Sender: FDA-Public Use
  Company Number: US-GILEAD-2011-0047182

PATIENT
  Age: 8 Year
  Sex: Female
  Weight: 27.1 kg

DRUGS (12)
  1. CAYSTON [Suspect]
     Indication: PSEUDOMONAS INFECTION
     Dosage: 75 MG, TID
     Route: 055
     Dates: start: 20100707
  2. TOBRAMYCIN [Concomitant]
     Indication: PSEUDOMONAS INFECTION
     Dosage: 300 MG, UNK
  3. PULMOZYME [Concomitant]
     Indication: SECRETION DISCHARGE
     Dosage: 2.5 MG, UNK
     Route: 055
  4. ALBUTEROL                          /00139501/ [Concomitant]
     Indication: ASTHMA
     Dosage: 2 DF, BID
  5. ADVAIR [Concomitant]
     Dosage: 2 DF, BID
     Route: 055
     Dates: start: 20080918
  6. ADEKS                              /01439301/ [Concomitant]
     Indication: VITAMIN SUPPLEMENTATION
     Dosage: 1 DF, UNK
     Route: 048
  7. LANSOPRAZOLE [Concomitant]
     Indication: MALABSORPTION
     Dosage: 15 MG, UNK
     Route: 048
     Dates: start: 20090917
  8. BACTRIM [Concomitant]
     Indication: INFECTION
     Dosage: 1 DF, UNK
     Route: 048
  9. VITAMIN D3 [Concomitant]
     Indication: VITAMIN D DECREASED
     Dosage: 1000 DF, UNK
     Route: 048
     Dates: start: 20100512
  10. CREON [Concomitant]
     Indication: MALABSORPTION
     Dosage: UNK
     Route: 048
     Dates: start: 20100512
  11. ZINC SULFATE [Concomitant]
     Indication: DECREASED APPETITE
     Dosage: 50 MG, UNK
     Route: 048
  12. SODIUM CHLORIDE [Concomitant]
     Indication: SECRETION DISCHARGE
     Dosage: 4 ML, UNK
     Route: 055

REACTIONS (1)
  - Alopecia [Not Recovered/Not Resolved]
